FAERS Safety Report 7794148-1 (Version None)
Quarter: 2011Q4

REPORT INFORMATION
  Report Type: 
  Country: None (occurrence: None)
  Receive Date: 20111004
  Receipt Date: 20110930
  Transmission Date: 20120403
  Serious: Yes (Death, Hospitalization, Other)
  Sender: FDA-Public Use
  Company Number: US-BAYER-2011-070933

PATIENT
  Age: 86 Year
  Sex: Male

DRUGS (2)
  1. SORAFENIB (RAF KINASE INHIBITOR) [Suspect]
     Indication: RENAL CELL CARCINOMA
     Dosage: 200 MG, BID
     Route: 048
     Dates: start: 20110803
  2. RED BLOOD CELLS [Concomitant]
     Dosage: 2 UNITS
     Route: 042
     Dates: start: 20110818

REACTIONS (15)
  - BLOOD PRESSURE SYSTOLIC INCREASED [None]
  - ASTHENIA [None]
  - BLOOD URINE PRESENT [None]
  - ABDOMINAL PAIN [None]
  - CONSTIPATION [None]
  - DIARRHOEA [None]
  - DEATH [None]
  - DYSPHONIA [None]
  - FALL [None]
  - ABDOMINAL DISTENSION [None]
  - DRY MOUTH [None]
  - ABNORMAL WEIGHT GAIN [None]
  - DYSPNOEA [None]
  - PACKED RED BLOOD CELL TRANSFUSION [None]
  - OEDEMA PERIPHERAL [None]
